FAERS Safety Report 4388977-4 (Version None)
Quarter: 2004Q2

REPORT INFORMATION
  Report Type: 
  Country: None (occurrence: None)
  Receive Date: 20040624
  Receipt Date: 20040614
  Transmission Date: 20050107
  Serious: No
  Sender: FDA-Public Use
  Company Number: 20101

PATIENT
  Age: 53 Year
  Sex: Female
  Weight: 86.1834 kg

DRUGS (6)
  1. NIASPAN [Suspect]
     Indication: BLOOD CHOLESTEROL ABNORMAL
     Dosage: 500 MG QHS PO
     Route: 048
     Dates: start: 20030801
  2. VITAMIN C [Concomitant]
  3. VITAMIN E [Concomitant]
  4. MULTI-VITAMIN [Concomitant]
  5. ASPIRIN [Concomitant]
  6. OCUVITE [Concomitant]

REACTIONS (1)
  - CATARACT [None]
